FAERS Safety Report 8576409-1 (Version None)
Quarter: 2012Q3

REPORT INFORMATION
  Report Type: 
  Country: None (occurrence: None)
  Receive Date: 20120807
  Receipt Date: 20120802
  Transmission Date: 20120928
  Serious: Yes (Other)
  Sender: FDA-Public Use
  Company Number: CA-ROCHE-1078856

PATIENT
  Sex: Female
  Weight: 66.284 kg

DRUGS (6)
  1. ACTEMRA [Suspect]
     Dates: start: 20120725
  2. ACTEMRA [Suspect]
     Indication: RHEUMATOID ARTHRITIS
     Route: 042
     Dates: start: 20120223
  3. RISEDRONATE SODIUM [Concomitant]
  4. PREDNISONE [Concomitant]
  5. FOLIC ACID [Concomitant]
  6. METHOTREXATE [Concomitant]

REACTIONS (5)
  - FATIGUE [None]
  - PALPITATIONS [None]
  - NAUSEA [None]
  - HYPERTENSION [None]
  - HEADACHE [None]
